FAERS Safety Report 8583543-9 (Version None)
Quarter: 2012Q3

REPORT INFORMATION
  Report Type: 
  Country: None (occurrence: None)
  Receive Date: 20120809
  Receipt Date: 20110606
  Transmission Date: 20120928
  Serious: Yes (Hospitalization)
  Sender: FDA-Public Use
  Company Number: US-BRISTOL-MYERS SQUIBB COMPANY-14649701

PATIENT
  Age: 25 Year
  Sex: Female

DRUGS (2)
  1. ARIPIPRAZOLE [Suspect]
     Indication: SCHIZOPHRENIA
     Dosage: RESTARTED ON ABILIFY 15 MG, PO, BID.
     Dates: start: 20090506
  2. NAPROXEN [Concomitant]
     Indication: HEADACHE
     Route: 048

REACTIONS (1)
  - SCHIZOPHRENIA [None]
